FAERS Safety Report 19259782 (Version 8)
Quarter: 2024Q3

REPORT INFORMATION
  Report Type: Spontaneous
  Country: US (occurrence: US)
  Receive Date: 20210514
  Receipt Date: 20240711
  Transmission Date: 20241017
  Serious: No
  Sender: PFIZER
  Company Number: US-PFIZER INC-2021494193

PATIENT
  Age: 88 Year
  Sex: Female

DRUGS (3)
  1. IBRANCE [Suspect]
     Active Substance: PALBOCICLIB
     Indication: Breast cancer female
     Dosage: 125 MG, (3X7 UD TAB)
  2. IBRANCE [Suspect]
     Active Substance: PALBOCICLIB
     Dosage: 100 MG, Q DAY FOR 21 DAYS THEN 7 DAYS OFF
     Route: 048
  3. IBRANCE [Suspect]
     Active Substance: PALBOCICLIB
     Dosage: 1 DF, CYCLIC (1 P.O. Q. DAY FOR 21 DAYS THEN 7 DAYS OFF)
     Route: 048

REACTIONS (2)
  - Hypoacusis [Unknown]
  - Psychiatric symptom [Unknown]
